FAERS Safety Report 4761792-5 (Version None)
Quarter: 2005Q3

REPORT INFORMATION
  Report Type: 
  Country: None (occurrence: None)
  Receive Date: 20050906
  Receipt Date: 20050816
  Transmission Date: 20060218
  Serious: Yes (Other)
  Sender: FDA-Public Use
  Company Number: PHBS2005BR11999

PATIENT
  Sex: Female

DRUGS (1)
  1. ZOMETA [Suspect]
     Indication: METASTASES TO BONE
     Dosage: 4 MG
     Route: 042

REACTIONS (4)
  - ASEPTIC NECROSIS BONE [None]
  - ENDODONTIC PROCEDURE [None]
  - INFLAMMATION [None]
  - OSTEONECROSIS [None]
